FAERS Safety Report 9805229 (Version 1)
Quarter: 2014Q1

REPORT INFORMATION
  Report Type: Spontaneous
  Country: US (occurrence: None)
  Receive Date: 20140107
  Receipt Date: 20140107
  Transmission Date: 20141002
  Serious: Yes (Life-Threatening, Hospitalization)
  Sender: FDA-Public Use
  Company Number: None

PATIENT
  Age: 80 Year
  Sex: Male
  Weight: 62.5 kg

DRUGS (1)
  1. WARFARIN [Suspect]
     Indication: ATRIAL FIBRILLATION
     Route: 048
     Dates: start: 20080731, end: 20131023

REACTIONS (8)
  - Gastrointestinal necrosis [None]
  - Hiatus hernia [None]
  - Gastrointestinal haemorrhage [None]
  - International normalised ratio increased [None]
  - Nausea [None]
  - Vomiting [None]
  - Oxygen saturation decreased [None]
  - Abdominal distension [None]
